APPROVED DRUG PRODUCT: FLUORINE F-18
Active Ingredient: SODIUM FLUORIDE F-18
Strength: 2mCi/ML **Federal Register determination that product was not discontinued or withdrawn for safety or effectiveness reasons**
Dosage Form/Route: INJECTABLE;INTRAVENOUS
Application: N017042 | Product #001
Applicant: GE HEALTHCARE
Approved: Approved Prior to Jan 1, 1982 | RLD: Yes | RS: No | Type: DISCN